FAERS Safety Report 7178713-0 (Version None)
Quarter: 2010Q4

REPORT INFORMATION
  Report Type: 
  Country: None (occurrence: None)
  Receive Date: 20101221
  Receipt Date: 20101207
  Transmission Date: 20110411
  Serious: Yes (Other)
  Sender: FDA-Public Use
  Company Number: DE-RANBAXY-2010RR-40365

PATIENT

DRUGS (16)
  1. AMITRIPTYLINE [Suspect]
  2. BUPROPION [Suspect]
  3. CITALOPRAM [Suspect]
  4. DULOXETIME HYDROCHLORIDE [Suspect]
  5. ESCITALOPRAM [Suspect]
  6. FLUOXETINE [Suspect]
  7. FLUVOXAMINE MALEATE [Suspect]
  8. MIRTAZAPINE [Suspect]
  9. MOCLOBEMIDE [Suspect]
  10. PAROXETINE HCL [Suspect]
  11. REBOXETINE [Suspect]
  12. SERTRALINE HYDROCHLORIDE [Suspect]
  13. VENLAFAXINE [Suspect]
  14. OLANZAPINE [Suspect]
  15. OXAZEPAM [Suspect]
  16. LEVOMEPROMAZINE [Suspect]

REACTIONS (3)
  - COMPLETED SUICIDE [None]
  - SUICIDAL IDEATION [None]
  - SUICIDE ATTEMPT [None]
